FAERS Safety Report 10247186 (Version 1)
Quarter: 2014Q2

REPORT INFORMATION
  Report Type: Spontaneous
  Country: None (occurrence: None)
  Receive Date: 20140617
  Receipt Date: 20140617
  Transmission Date: 20141212
  Serious: Yes (Life-Threatening, Hospitalization)
  Sender: FDA-Public Use
  Company Number: DE-DEXPHARM-20140319

PATIENT
  Age: 59 Year
  Sex: Male

DRUGS (4)
  1. OMEPRAZOLE ACTIVE SUBSTANCES: OMEPRAZOLE [Suspect]
     Route: 048
     Dates: start: 20130605, end: 20130704
  2. ZYPREXA [Suspect]
     Route: 048
     Dates: start: 20130606, end: 20130613
  3. DISTRANEURIN-KAPSEIN [Concomitant]
  4. QUILONORM RETARD [Concomitant]

REACTIONS (2)
  - Thrombocytopenia [None]
  - Apparent life threatening event [None]
